FAERS Safety Report 7377870-0 (Version None)
Quarter: 2011Q1

REPORT INFORMATION
  Report Type: 
  Country: None (occurrence: None)
  Receive Date: 20110328
  Receipt Date: 20110324
  Transmission Date: 20110831
  Serious: Yes (Hospitalization, Other)
  Sender: FDA-Public Use
  Company Number: US-AMGEN-QUU409630

PATIENT
  Age: 70 Year
  Sex: Female
  Weight: 66.3 kg

DRUGS (12)
  1. CYCLOSPORINE [Concomitant]
     Dosage: UNK UNK, UNK
     Route: 048
     Dates: start: 20100218
  2. VINCRISTINE SULFATE [Concomitant]
     Dosage: UNK UNK, UNK
     Dates: start: 20090316
  3. NPLATE [Suspect]
     Indication: IDIOPATHIC THROMBOCYTOPENIC PURPURA
     Dosage: UNK UNK, UNK
     Dates: start: 20090306
  4. PREDNISONE [Concomitant]
     Dosage: UNK UNK, UNK
     Dates: start: 20040301
  5. IMMUNOGLOBULINS [Concomitant]
     Dosage: 400 MG/KG, QD
     Route: 042
     Dates: start: 20090219
  6. RITUXIMAB [Concomitant]
     Dosage: UNK UNK, UNK
     Dates: start: 20090309
  7. AZATHIOPRINE [Concomitant]
     Dosage: UNK UNK, UNK
     Dates: start: 20090211
  8. VALACYCLOVIR HYDROCHLORIDE [Concomitant]
     Dosage: 250 MG, QD
     Route: 048
  9. CITRACAL PLUS D [Concomitant]
     Dosage: 400 IU, QD
     Route: 048
  10. NITROFURANTOIN (MONOHYDRATE/MACROCRYSTALS) [Concomitant]
     Dosage: 100 MG, BID
     Route: 048
  11. MULTI-VITAMINS [Concomitant]
     Dosage: UNK UNK, QD
     Route: 048
  12. PANTOPRAZOLE SODIUM [Concomitant]
     Dosage: 40 MG, BID
     Route: 048

REACTIONS (9)
  - DIZZINESS [None]
  - HEADACHE [None]
  - HAEMATURIA [None]
  - CORONARY ARTERY OCCLUSION [None]
  - JOINT SWELLING [None]
  - THERAPEUTIC RESPONSE DECREASED [None]
  - CARDIAC DISORDER [None]
  - THROMBOCYTOPENIA [None]
  - SKIN DISORDER [None]
